FAERS Safety Report 7364955-8 (Version None)
Quarter: 2011Q1

REPORT INFORMATION
  Report Type: 
  Country: None (occurrence: None)
  Receive Date: 20110316
  Receipt Date: 20110316
  Transmission Date: 20110831
  Serious: Yes (Other)
  Sender: FDA-Public Use
  Company Number: None

PATIENT
  Age: 76 Year
  Sex: Male
  Weight: 52.1637 kg

DRUGS (4)
  1. METRONIDAZOLE [Suspect]
     Indication: BACTERIAL INFECTION
     Dosage: 1 TABLET EVERY 8 HRS
     Dates: start: 20110221
  2. METRONIDAZOLE [Suspect]
     Indication: BACTERIAL INFECTION
     Dosage: 1 TABLET EVERY 8 HRS
     Dates: start: 20110218
  3. METRONIDAZOLE [Suspect]
     Indication: BACTERIAL INFECTION
     Dosage: 1 TABLET EVERY 8 HRS
     Dates: start: 20110219
  4. METRONIDAZOLE [Suspect]
     Indication: BACTERIAL INFECTION
     Dosage: 1 TABLET EVERY 8 HRS
     Dates: start: 20110220

REACTIONS (9)
  - PAIN [None]
  - PROCTALGIA [None]
  - HAEMORRHOIDS [None]
  - NEURALGIA [None]
  - MUSCLE SPASMS [None]
  - DIARRHOEA [None]
  - HEADACHE [None]
  - FLATULENCE [None]
  - MYALGIA [None]
